FAERS Safety Report 5295505-8 (Version None)
Quarter: 2007Q2

REPORT INFORMATION
  Report Type: 
  Country: None (occurrence: None)
  Receive Date: 20070405
  Receipt Date: 20070320
  Transmission Date: 20071010
  Serious: Yes (Life-Threatening, Hospitalization)
  Sender: FDA-Public Use
  Company Number: 239258

PATIENT
  Age: 43 Year
  Sex: Male
  Weight: 80 kg

DRUGS (8)
  1. BEVACIZUMAB(BEVACIZUMAB) POWDER AND SOLVENT FOR SOLUTION FOR INFUSION, [Suspect]
     Indication: NON-SMALL CELL LUNG CANCER
     Dosage: 1185 MG, Q3W, INTRAVENOUS
     Route: 042
     Dates: start: 20060525
  2. VINORELBINE TARTRATE [Concomitant]
  3. LEVOTHYROXINE (LEVOGTHYROXINE) [Concomitant]
  4. CARDURAN (DOXAZOSIN MESYLATE) [Concomitant]
  5. STARLIX [Concomitant]
  6. METFORMIN HCL [Concomitant]
  7. AMITRIL (AMITRIPTYLINE HYDROCHLORIDE) [Concomitant]
  8. AAS (ASPIRIN) [Concomitant]

REACTIONS (5)
  - CARDIAC FAILURE CONGESTIVE [None]
  - CONDITION AGGRAVATED [None]
  - DIALYSIS [None]
  - PNEUMONIA [None]
  - RENAL FAILURE ACUTE [None]
